FAERS Safety Report 13741914 (Version 3)
Quarter: 2017Q3

REPORT INFORMATION
  Report Type: Spontaneous
  Country: US (occurrence: US)
  Receive Date: 20170711
  Receipt Date: 20170920
  Transmission Date: 20171127
  Serious: No
  Sender: FDA-Public Use
  Company Number: US-PFIZER INC-2017298883

PATIENT
  Age: 79 Year
  Sex: Female
  Weight: 113 kg

DRUGS (58)
  1. XELJANZ [Suspect]
     Active Substance: TOFACITINIB CITRATE
     Indication: RHEUMATOID ARTHRITIS
     Dosage: 5 MG, DAILY
     Dates: start: 20170510, end: 20170603
  2. CARVEDILOL. [Concomitant]
     Active Substance: CARVEDILOL
     Indication: BLOOD PRESSURE ABNORMAL
  3. COZAAR [Concomitant]
     Active Substance: LOSARTAN POTASSIUM
     Dosage: 25 MG (1 TABLET), DAILY
     Route: 048
  4. METHOTREXATE SODIUM. [Concomitant]
     Active Substance: METHOTREXATE SODIUM
     Dosage: 0.6CC ONCE A WEEK
     Route: 042
  5. FUROSEMIDE. [Concomitant]
     Active Substance: FUROSEMIDE
     Indication: FLUID IMBALANCE
     Dosage: 40 MG, 1X/DAY
     Route: 048
     Dates: start: 20170815
  6. ACETAMINOPHEN EXTRA STRENGTH [Concomitant]
     Active Substance: ACETAMINOPHEN
     Dosage: 2 DF (TWO TABLETS), DAILY
     Route: 048
  7. BENADRYL [Concomitant]
     Active Substance: DIPHENHYDRAMINE HYDROCHLORIDE
     Dosage: UNK, AS NEEDED(MAGIC MOUTHWASH:SWISH AND SPIT 2 TABLESPOONS THRICE A DAY AS NEEDED ,EQUAL PARTS)
  8. PHILLIPS COLON HEALTH [Concomitant]
     Dosage: 1 DF, DAILY
     Route: 048
  9. LOSARTAN. [Concomitant]
     Active Substance: LOSARTAN
     Indication: BLOOD PRESSURE ABNORMAL
     Dosage: 25 MG, 1X/DAY
     Route: 048
  10. ROBAXIN [Concomitant]
     Active Substance: METHOCARBAMOL
     Indication: PAIN
     Dosage: 500 MG (1 TABLET),  EVERY 8 HOURS AS NEEDED
     Route: 048
  11. ALEVE [Concomitant]
     Active Substance: NAPROXEN SODIUM
     Dosage: 1 TO 2 TABLETS, AS NEEDED DAILY AT BEDTIME
     Route: 048
  12. ZOLOFT [Concomitant]
     Active Substance: SERTRALINE HYDROCHLORIDE
     Dosage: 100 MG (1 TABLET), DAILY (QD)
     Route: 048
  13. MYLANTA [Concomitant]
     Active Substance: ALUMINUM HYDROXIDE\DIMETHICONE\MAGNESIUM HYDROXIDE
     Dosage: UNK, AS NEEDED (MAGIC MOUTHWASH:SWISH AND SPIT 2 TABLESPOONS THRICE A DAY AS NEEDED ,EQUAL PARTS)
  14. BACTROBAN [Concomitant]
     Active Substance: MUPIROCIN\MUPIROCIN CALCIUM
     Dosage: UNK, APPLY A SMALL AMOUNT, TWICE A DAY (BID)
     Route: 061
  15. SUPREP BOWEL PREP [Concomitant]
     Active Substance: MAGNESIUM SULFATE\POTASSIUM SULFATE\SODIUM SULFATE
     Indication: COLONOSCOPY ABNORMAL
     Dosage: UNK, AS DIRECTED
  16. ASPIRIN. [Concomitant]
     Active Substance: ASPIRIN
     Indication: CARDIAC DISORDER
     Dosage: 81 MG, 1X/DAY
     Route: 048
  17. ATORVASTATIN [Concomitant]
     Active Substance: ATORVASTATIN
     Indication: BLOOD CHOLESTEROL
     Dosage: 20 MG, 1X/DAY (AT NIGHT)
     Route: 048
  18. CARVEDILOL. [Concomitant]
     Active Substance: CARVEDILOL
     Indication: CARDIAC DISORDER
     Dosage: 3.125 MG, 2X/DAY (1 TABLET) (BID)
     Route: 048
  19. OMEPRAZOLE. [Concomitant]
     Active Substance: OMEPRAZOLE
     Dosage: 20 MG, 1X/DAY
     Route: 048
  20. LOVASTATIN. [Concomitant]
     Active Substance: LOVASTATIN
     Dosage: 20 MG (1 TABLET), EVERY NIGHT (QHS)
     Route: 048
  21. IMODIUM MULTI-SYMPTOM RELIEF [Concomitant]
     Active Substance: DIMETHICONE\LOPERAMIDE HYDROCHLORIDE
     Dosage: UNK, 1/12 TAB EVERY OTHER DAY (QOD)
     Route: 048
  22. VITAMIN D3 [Concomitant]
     Active Substance: CHOLECALCIFEROL
     Dosage: 5000 IU (1 TABLET), ONCE A WEEK
     Route: 048
  23. NEOMYCIN-POLYMYXIN-HC [Concomitant]
     Dosage: UNK, 3-4 DROPS AFFECTED EAR 3-4 TIMES DAILY FOR 5-7 DAYS (3.5/ 10000)
  24. PREDNISONE. [Concomitant]
     Active Substance: PREDNISONE
     Dosage: 10 MG, USE AS DIRECTED
  25. SERTRALINE [Concomitant]
     Active Substance: SERTRALINE HYDROCHLORIDE
     Indication: DEPRESSION
     Dosage: 100 MG, 1X/DAY
     Route: 048
  26. CENTRUM SILVER [Concomitant]
     Active Substance: MINERALS\VITAMINS
     Indication: ANAEMIA
     Dosage: 1 DF, ALTERNATE DAY (EVERY OTHER DAY)
     Route: 048
  27. METHOCARBAMOL. [Concomitant]
     Active Substance: METHOCARBAMOL
     Indication: PAIN
     Dosage: 500 MG, AS NEEDED
  28. METHOTREXATE. [Concomitant]
     Active Substance: METHOTREXATE
     Indication: RHEUMATOID ARTHRITIS
     Dosage: UNK UNK, WEEKLY (.6 SUBCUTANEOUS INJECTION ONCE A WEEK)
     Route: 058
     Dates: start: 1996
  29. XELJANZ [Suspect]
     Active Substance: TOFACITINIB CITRATE
     Dosage: 5 MG, 1X/DAY
     Route: 048
     Dates: start: 201704
  30. LIDOCAINE. [Concomitant]
     Active Substance: LIDOCAINE
     Dosage: UNK, AS NEEDED(MAGIC MOUTHWASH:SWISH AND SPIT 2 TABLESPOONS THRICE A DAY AS NEEDED ,EQUAL PARTS)
  31. NYSTATIN. [Concomitant]
     Active Substance: NYSTATIN
     Dosage: APPLY TWICE TO THRICE A DAY (BID TO TID)
  32. FLUTICASONE PROPIONATE. [Concomitant]
     Active Substance: FLUTICASONE PROPIONATE
     Dosage: 2 SPRAYS INTO EACH NOSTRIL DAILY
     Route: 045
  33. ACETAMINOPHEN. [Concomitant]
     Active Substance: ACETAMINOPHEN
     Indication: PAIN
     Dosage: 500 MG, 2X/DAY
     Route: 048
  34. OMEPRAZOLE. [Concomitant]
     Active Substance: OMEPRAZOLE
     Indication: GASTROOESOPHAGEAL REFLUX DISEASE
     Dosage: 20 MG (1 TABLET), DAILY
     Route: 048
  35. FUROSEMIDE. [Concomitant]
     Active Substance: FUROSEMIDE
     Indication: OEDEMA
     Dosage: 20 MG (1 TABLET), DAILY
     Route: 048
  36. TRESIBA [Concomitant]
     Active Substance: INSULIN DEGLUDEC
     Indication: DIABETES MELLITUS
     Dosage: 34 IU, 1X/DAY (BEFORE BED)
     Route: 058
  37. METFORMIN HCL [Concomitant]
     Active Substance: METFORMIN HYDROCHLORIDE
     Dosage: 500 MG (1 TABLET), DAILY (QD)
     Route: 048
  38. HUMALOG [Concomitant]
     Active Substance: INSULIN LISPRO
     Indication: DIABETES MELLITUS
     Dosage: 3 IU, 1X/DAY (BEFORE DINNER AT NIGHT)
     Route: 058
  39. FOLIC ACID. [Concomitant]
     Active Substance: FOLIC ACID
     Dosage: 1 UNK, UNK
     Route: 048
     Dates: start: 1996
  40. SYMBICORT [Concomitant]
     Active Substance: BUDESONIDE\FORMOTEROL FUMARATE DIHYDRATE
     Dosage: 1 PUFF TWICE A DAY (BID)
     Route: 055
  41. DILAUDID [Concomitant]
     Active Substance: HYDROMORPHONE HYDROCHLORIDE
     Indication: PAIN
     Dosage: 2 MG (1 TABLET), AS NEEDED EVERY 12 HOURS (Q12H)
     Route: 048
  42. DILAUDID [Concomitant]
     Active Substance: HYDROMORPHONE HYDROCHLORIDE
     Dosage: 1 OR 2 BY MOUTH EVERY 4 HOURS AS NEEDED
     Route: 048
  43. CENTRUM SILVER [Concomitant]
     Active Substance: MINERALS\VITAMINS
     Indication: BLOOD IRON DECREASED
  44. XELJANZ [Suspect]
     Active Substance: TOFACITINIB CITRATE
     Dosage: 5 MG, 2X/DAY
     Dates: start: 20170810
  45. FUROSEMIDE. [Concomitant]
     Active Substance: FUROSEMIDE
     Indication: JOINT SWELLING
  46. CALTRATE 600+D SOFT CHEW [Concomitant]
     Dosage: ONE SOFT CHEW, TWICE DAILY
     Route: 048
  47. SYNTHROID [Concomitant]
     Active Substance: LEVOTHYROXINE SODIUM
     Dosage: 75 UG, DAILY
     Route: 048
  48. ZYRTEC [Concomitant]
     Active Substance: CETIRIZINE HYDROCHLORIDE
     Dosage: 10 MG (1 TABLET), DAILY
     Route: 048
  49. PROVENTIL HFA [Concomitant]
     Active Substance: ALBUTEROL SULFATE
     Dosage: UNK, TAKE 2-3 PUFFS EVERY 6 HOURS
  50. XELJANZ [Suspect]
     Active Substance: TOFACITINIB CITRATE
     Dosage: 5 MG, DAILY
     Dates: start: 20170609, end: 20170711
  51. XELJANZ [Suspect]
     Active Substance: TOFACITINIB CITRATE
     Dosage: 5 MG, ONCE  DAILY
     Route: 048
     Dates: start: 20170725
  52. ASPIRIN EC [Concomitant]
     Active Substance: ASPIRIN
     Dosage: 81 MG (1 TABLET), DAILY
     Route: 048
  53. FOLIC ACID. [Concomitant]
     Active Substance: FOLIC ACID
     Indication: CARDIAC DISORDER
     Dosage: 1 MG (1 TABLET) EVERY OTHER DAY
     Route: 048
  54. RESTASIS [Concomitant]
     Active Substance: CYCLOSPORINE
     Dosage: 1 DROP (GTT), EACH EYE TWICE A DAY (OU, BID)
  55. CENTRUM SILVER /07422601/ [Concomitant]
     Dosage: 1 TABLET, DAILY (QD)
     Route: 048
  56. CALTRATE 600+D [Concomitant]
     Dosage: 1 DF, 2X/DAY (ONE TWICE A DAY)
  57. METFORMIN [Concomitant]
     Active Substance: METFORMIN HYDROCHLORIDE
     Indication: DIABETES MELLITUS
     Dosage: 500 MG, 1X/DAY, (BEFORE BREAKFAST)
  58. VITAMIN D [Concomitant]
     Active Substance: CHOLECALCIFEROL
     Indication: VITAMIN D DECREASED
     Dosage: 50000 IU, WEEKLY, (ONCE A WEEK)

REACTIONS (9)
  - Off label use [Unknown]
  - Hypersomnia [Recovered/Resolved]
  - Pre-existing condition improved [Unknown]
  - Somnolence [Recovered/Resolved]
  - Joint swelling [Unknown]
  - Therapeutic response unexpected [Unknown]
  - Fall [Recovered/Resolved]
  - Limb injury [Recovered/Resolved]
  - Urinary tract infection [Unknown]

NARRATIVE: CASE EVENT DATE: 201708
